FAERS Safety Report 11965521 (Version 1)
Quarter: 2016Q1

REPORT INFORMATION
  Report Type: Spontaneous
  Country: GB (occurrence: GB)
  Receive Date: 20160127
  Receipt Date: 20160127
  Transmission Date: 20160526
  Serious: Yes (Hospitalization)
  Sender: FDA-Public Use
  Company Number: GB-TEVA-626818ACC

PATIENT
  Age: 58 Year
  Sex: Female
  Weight: 127 kg

DRUGS (19)
  1. INSUMAN COMB 25 [Concomitant]
  2. LEVOTHYROXINE. [Concomitant]
     Active Substance: LEVOTHYROXINE
  3. MORPHINE SULFATE. [Concomitant]
     Active Substance: MORPHINE SULFATE
  4. SIMVASTATIN. [Concomitant]
     Active Substance: SIMVASTATIN
  5. ZOMORPH [Concomitant]
     Active Substance: MORPHINE SULFATE
  6. CLOTRIMAZOLE. [Concomitant]
     Active Substance: CLOTRIMAZOLE
  7. DEXCEL-PHARMA ISOSORBIDE MONONITRATE [Concomitant]
  8. LOSARTAN. [Concomitant]
     Active Substance: LOSARTAN
  9. MEBEVERINE [Concomitant]
     Active Substance: MEBEVERINE
  10. PARACETAMOL [Concomitant]
     Active Substance: ACETAMINOPHEN
  11. SALBUTAMOL [Concomitant]
     Active Substance: ALBUTEROL
  12. SAXAGLIPTIN [Concomitant]
     Active Substance: SAXAGLIPTIN
  13. CITALOPRAM [Concomitant]
     Active Substance: CITALOPRAM HYDROBROMIDE
  14. PROPRANOLOL [Concomitant]
     Active Substance: PROPRANOLOL\PROPRANOLOL HYDROCHLORIDE
  15. CAPSAICIN. [Concomitant]
     Active Substance: CAPSAICIN
  16. FOSTAIR [Concomitant]
     Active Substance: BECLOMETHASONE\FORMOTEROL
  17. OMEPRAZOLE. [Concomitant]
     Active Substance: OMEPRAZOLE
  18. VENLAFAXINE HYDROCHLORIDE. [Suspect]
     Active Substance: VENLAFAXINE HYDROCHLORIDE
     Indication: DEPRESSION
     Dosage: 75 MILLIGRAM DAILY;
     Route: 048
     Dates: start: 20150701, end: 20151226
  19. ASPIRIN. [Concomitant]
     Active Substance: ASPIRIN

REACTIONS (3)
  - Mental disorder [Unknown]
  - Hyperhidrosis [Recovering/Resolving]
  - Withdrawal syndrome [Unknown]

NARRATIVE: CASE EVENT DATE: 20150701
